FAERS Safety Report 17542331 (Version 1)
Quarter: 2020Q1

REPORT INFORMATION
  Report Type: Spontaneous
  Country: US (occurrence: US)
  Receive Date: 20200313
  Receipt Date: 20200313
  Transmission Date: 20200409
  Serious: Yes (Other)
  Sender: FDA-Public Use
  Company Number: US-AMGEN-USASP2020040742

PATIENT
  Sex: Female

DRUGS (2)
  1. ENBREL [Suspect]
     Active Substance: ETANERCEPT
     Indication: TWIN REVERSED ARTERIAL PERFUSION SEQUENCE MALFORMATION
     Dosage: UNK
     Route: 065
  2. ENBREL [Suspect]
     Active Substance: ETANERCEPT
     Indication: BLAU SYNDROME

REACTIONS (3)
  - Juvenile idiopathic arthritis [Unknown]
  - Mental disorder [Unknown]
  - Off label use [Unknown]
